FAERS Safety Report 17205145 (Version 1)
Quarter: 2019Q4

REPORT INFORMATION
  Report Type: Spontaneous
  Country: SE (occurrence: SE)
  Receive Date: 20191227
  Receipt Date: 20191227
  Transmission Date: 20200122
  Serious: Yes (Hospitalization)
  Sender: FDA-Public Use
  Company Number: SE-TEVA-2019-SE-1157301

PATIENT
  Age: 15 Year
  Sex: Female

DRUGS (3)
  1. PROPAVAN [Suspect]
     Active Substance: PROPIOMAZINE
     Route: 048
     Dates: start: 20180606, end: 20180606
  2. FLUOXETINE [Suspect]
     Active Substance: FLUOXETINE HYDROCHLORIDE
     Route: 048
     Dates: start: 20180606, end: 20180606
  3. MELATONIN [Suspect]
     Active Substance: MELATONIN
     Route: 048
     Dates: start: 20180606, end: 20180606

REACTIONS (2)
  - Intentional self-injury [Unknown]
  - Intentional overdose [Unknown]

NARRATIVE: CASE EVENT DATE: 20180606
